FAERS Safety Report 4951259-3 (Version None)
Quarter: 2006Q1

REPORT INFORMATION
  Report Type: 
  Country: None (occurrence: None)
  Receive Date: 20060317
  Receipt Date: 20060228
  Transmission Date: 20060701
  Serious: Yes (Other)
  Sender: FDA-Public Use
  Company Number: US_0407104261

PATIENT
  Sex: Female

DRUGS (4)
  1. GEMCITABINE HYDROCHLORIDE(GEMCITABINE HYDROCHLORIDE) VIAL [Suspect]
     Indication: BREAST CANCER METASTATIC
     Dosage: 2500 MG/M2, OTHER, INTRAVENOUS
     Route: 042
  2. DOCETAXEL (DOCETAXEL) [Concomitant]
  3. DEXAMETHASONE [Concomitant]
  4. ANTIEMETICS AND ANTINAUSEANTS [Concomitant]

REACTIONS (2)
  - DRUG TOXICITY [None]
  - NEUROPATHY PERIPHERAL [None]
